FAERS Safety Report 7298021-7 (Version None)
Quarter: 2011Q1

REPORT INFORMATION
  Report Type: 
  Country: None (occurrence: None)
  Receive Date: 20110214
  Receipt Date: 20110214
  Transmission Date: 20110831
  Serious: Yes (Other)
  Sender: FDA-Public Use
  Company Number: None

PATIENT
  Age: 30 Year
  Sex: Male

DRUGS (1)
  1. LANSOPRAZOLE [Suspect]
     Dosage: GIVES 1 TAB TWICE DAILY VIA GTUBE

REACTIONS (2)
  - PRODUCT SOLUBILITY ABNORMAL [None]
  - PRODUCT SUBSTITUTION ISSUE [None]
